FAERS Safety Report 25966414 (Version 1)
Quarter: 2025Q4

REPORT INFORMATION
  Report Type: Spontaneous
  Country: US (occurrence: US)
  Receive Date: 20251028
  Receipt Date: 20251028
  Transmission Date: 20260118
  Serious: No
  Sender: PADAGIS
  Company Number: US-PADAGIS-2025PAD01310

PATIENT

DRUGS (1)
  1. MUPIROCIN [Suspect]
     Active Substance: MUPIROCIN
     Indication: Infection prophylaxis
     Dosage: TWO OR THREE TIMES EARLIER, JUST INSIDE THE NOSE USING A Q-TIP SHORTLY BEFORE BEDTIME
     Route: 045

REACTIONS (2)
  - Rhinorrhoea [Not Recovered/Not Resolved]
  - Product prescribing error [Unknown]
